FAERS Safety Report 7420744-7 (Version None)
Quarter: 2011Q2

REPORT INFORMATION
  Report Type: 
  Country: None (occurrence: None)
  Receive Date: 20110418
  Receipt Date: 20110408
  Transmission Date: 20111010
  Serious: Yes (Hospitalization)
  Sender: FDA-Public Use
  Company Number: US-BRISTOL-MYERS SQUIBB COMPANY-13490909

PATIENT
  Age: 75 Year
  Sex: Male
  Weight: 68 kg

DRUGS (16)
  1. IMODIUM [Concomitant]
     Indication: DIARRHOEA
  2. TEMAZEPAM [Concomitant]
  3. SLO-MAG [Concomitant]
     Dosage: SLO MAGNESIUM
     Route: 065
     Dates: start: 20060811
  4. PROCARDIA XL [Concomitant]
     Route: 065
     Dates: start: 20060811
  5. ZOLOFT [Concomitant]
     Dates: start: 20060811
  6. MEGACE [Concomitant]
     Dates: start: 20060811
  7. CETUXIMAB [Suspect]
     Indication: NON-SMALL CELL LUNG CANCER
     Dosage: FIRST INFUSION WAS ON 11MAY2006 250 MG/M2:13TH INF(4AUG06) 11MAY-25AUG2006;106DAYS
     Route: 042
     Dates: start: 20060511
  8. ZOCOR [Concomitant]
     Dosage: HS
  9. PROTONIX [Concomitant]
     Route: 065
  10. ATIVAN [Concomitant]
     Route: 065
     Dates: start: 20060811
  11. ROCEPHIN [Concomitant]
     Route: 065
     Dates: start: 20060811, end: 20060814
  12. METOPROLOL [Concomitant]
     Route: 065
     Dates: start: 20060811
  13. DECADRON [Concomitant]
     Route: 065
     Dates: start: 20060811
  14. DOCETAXEL [Suspect]
     Indication: NON-SMALL CELL LUNG CANCER
     Dosage: 1ST INF:131MG REDUCED:94MG 11MY-4AG06;85DY(131D) UNK-4AG06(94MG)5TH INF DISCONT:25AG06,LTDS:4AG06
     Route: 042
     Dates: start: 20060511
  15. NEXIUM [Concomitant]
     Route: 065
     Dates: start: 20060811
  16. COMPAZINE [Concomitant]
     Dosage: 40MG(10MG, 1 IN 6HRS)

REACTIONS (3)
  - HYPOTENSION [None]
  - OEDEMA PERIPHERAL [None]
  - FAILURE TO THRIVE [None]
